FAERS Safety Report 10684930 (Version 2)
Quarter: 2014Q4

REPORT INFORMATION
  Report Type: Spontaneous
  Country: JP (occurrence: JP)
  Receive Date: 20141231
  Receipt Date: 20141231
  Transmission Date: 20150529
  Serious: Yes (Life-Threatening, Hospitalization, Other)
  Sender: FDA-Public Use
  Company Number: JP-PFIZER INC-2014197515

PATIENT
  Age: 45 Year
  Sex: Male
  Weight: 116 kg

DRUGS (24)
  1. CAMPTO [Suspect]
     Active Substance: IRINOTECAN
     Indication: PANCREATIC CARCINOMA
     Dosage: 343.7 MG, 1X/DAY
     Route: 041
     Dates: start: 20140624, end: 20140624
  2. PRIMPERAN [Concomitant]
     Active Substance: METOCLOPRAMIDE HYDROCHLORIDE
     Dosage: UNK
     Dates: start: 20140624
  3. FENTOS [Concomitant]
     Active Substance: FENTANYL
     Dosage: UNK
     Dates: start: 20140624
  4. NEXIUM [Concomitant]
     Active Substance: ESOMEPRAZOLE MAGNESIUM
     Dosage: UNK
     Dates: start: 20140624
  5. PURSENNID [Concomitant]
     Active Substance: SENNOSIDES A AND B
     Dosage: UNK
     Dates: start: 20140624
  6. LANTUS [Concomitant]
     Active Substance: INSULIN GLARGINE
     Dosage: UNK
     Dates: start: 20140624
  7. ELPLAT [Suspect]
     Active Substance: OXALIPLATIN
     Dosage: 148.9 MG, 1X/DAY
     Route: 041
     Dates: start: 20140715, end: 20140715
  8. LEVOFOLINATE CALCIUM [Concomitant]
     Active Substance: LEUCOVORIN CALCIUM
     Indication: PANCREATIC CARCINOMA
     Dosage: 200 MG/M2, UNK
     Dates: start: 20140624, end: 20140805
  9. LOXOPROFEN [Concomitant]
     Active Substance: LOXOPROFEN
     Dosage: UNK
     Dates: start: 20140624
  10. NEUTROGIN [Concomitant]
     Active Substance: LENOGRASTIM
     Dosage: UNK
     Dates: start: 20140703, end: 20140822
  11. CAMPTO [Suspect]
     Active Substance: IRINOTECAN
     Dosage: 274.9 MG, 1X/DAY
     Route: 041
     Dates: start: 20140805, end: 20140805
  12. ELPLAT [Suspect]
     Active Substance: OXALIPLATIN
     Indication: PANCREATIC CARCINOMA
     Dosage: 194.7 MG, 1X/DAY
     Route: 041
     Dates: start: 20140624, end: 20140624
  13. ELPLAT [Suspect]
     Active Substance: OXALIPLATIN
     Dosage: 148.9 MG, 1X/DAY
     Route: 041
     Dates: start: 20140805, end: 20140805
  14. 5-FU [Suspect]
     Active Substance: FLUOROURACIL
     Indication: PANCREATIC CARCINOMA
     Dosage: 5498.4 MG, ALTERNATE DAY
     Route: 041
     Dates: start: 20140624, end: 20140624
  15. 5-FU [Suspect]
     Active Substance: FLUOROURACIL
     Dosage: 5498.4 MG, ALTERNATE DAY
     Route: 041
     Dates: start: 20140715, end: 20140715
  16. 5-FU [Suspect]
     Active Substance: FLUOROURACIL
     Dosage: 5498.4 MG, ALTERNATE DAY
     Route: 041
     Dates: start: 20140805, end: 20140805
  17. FENTANYL CITRATE. [Concomitant]
     Active Substance: FENTANYL CITRATE
     Dosage: UNK
     Dates: start: 20140624
  18. OLMETEC [Concomitant]
     Active Substance: OLMESARTAN MEDOXOMIL
     Dosage: UNK
     Dates: start: 20140624
  19. DECADRON [Concomitant]
     Active Substance: DEXAMETHASONE
     Dosage: UNK
     Dates: start: 20140624, end: 20140805
  20. MAXIPIME [Concomitant]
     Active Substance: CEFEPIME HYDROCHLORIDE
     Dosage: UNK
     Dates: start: 20140705, end: 20140824
  21. SELBEX [Concomitant]
     Active Substance: TEPRENONE
     Dosage: UNK
     Dates: start: 20140624
  22. CAMPTO [Suspect]
     Active Substance: IRINOTECAN
     Dosage: 274.9 MG, 1X/DAY
     Route: 041
     Dates: start: 20140715, end: 20140715
  23. MAGMITT [Concomitant]
     Active Substance: MAGNESIUM OXIDE
     Dosage: UNK
     Dates: start: 20140624
  24. WARFARIN [Concomitant]
     Active Substance: WARFARIN
     Dosage: UNK
     Dates: start: 20140624

REACTIONS (6)
  - Febrile neutropenia [Recovered/Resolved]
  - Platelet count decreased [Recovered/Resolved]
  - Nausea [Recovering/Resolving]
  - Vomiting [Recovering/Resolving]
  - White blood cell count decreased [Recovered/Resolved]
  - Haemoglobin decreased [Recovering/Resolving]

NARRATIVE: CASE EVENT DATE: 20140624
